FAERS Safety Report 17110006 (Version 1)
Quarter: 2019Q4

REPORT INFORMATION
  Report Type: Spontaneous
  Country: US (occurrence: US)
  Receive Date: 20191108
  Receipt Date: 20191108
  Transmission Date: 20200122
  Serious: No
  Sender: FDA-Public Use
  Company Number: None

PATIENT
  Age: 37 Year
  Sex: Female
  Weight: 101.15 kg

DRUGS (31)
  1. MECLIZINE [Concomitant]
     Active Substance: MECLIZINE HYDROCHLORIDE
  2. DIPHENHIST [Concomitant]
     Active Substance: DIPHENHYDRAMINE HYDROCHLORIDE
  3. DIVALPROEX [Concomitant]
     Active Substance: DIVALPROEX SODIUM
  4. RANITIDINE. [Concomitant]
     Active Substance: RANITIDINE
  5. PROAIR HFA [Concomitant]
     Active Substance: ALBUTEROL SULFATE
  6. VASCEPA [Concomitant]
     Active Substance: ICOSAPENT ETHYL
  7. CLINDAMYCIN 300MG [Suspect]
     Active Substance: CLINDAMYCIN PHOSPHATE
     Indication: URINARY TRACT INFECTION
     Dosage: ?          QUANTITY:2 DF DOSAGE FORM;?
     Route: 048
     Dates: start: 20190917
  8. TRAZODONE [Concomitant]
     Active Substance: TRAZODONE HYDROCHLORIDE
  9. KOMBIGLYZE XR [Concomitant]
     Active Substance: METFORMIN HYDROCHLORIDE\SAXAGLIPTIN HYDROCHLORIDE
  10. ONDANSETRON [Concomitant]
     Active Substance: ONDANSETRON
  11. LOSARTAN POT [Concomitant]
     Active Substance: LOSARTAN POTASSIUM
  12. LINZESS [Concomitant]
     Active Substance: LINACLOTIDE
  13. VITAMIN D [Concomitant]
     Active Substance: VITAMIN D NOS
  14. SUMATRIPTAN. [Concomitant]
     Active Substance: SUMATRIPTAN
  15. GABAPENTIN. [Concomitant]
     Active Substance: GABAPENTIN
  16. MYRBETRIQ [Concomitant]
     Active Substance: MIRABEGRON
  17. SULFAMETHTRIME [Concomitant]
  18. HYDROXYZ-HCL [Concomitant]
  19. FENOFIBRATE. [Concomitant]
     Active Substance: FENOFIBRATE
  20. METROPOL TAR [Concomitant]
  21. NAPROXZEN SOD [Concomitant]
  22. ASPIR-LOW [Concomitant]
     Active Substance: ASPIRIN
  23. ESTRADIOL. [Concomitant]
     Active Substance: ESTRADIOL
  24. VITAMIN D [Concomitant]
     Active Substance: VITAMIN D NOS
  25. SYMBICORT [Concomitant]
     Active Substance: BUDESONIDE\FORMOTEROL FUMARATE DIHYDRATE
  26. HYDROCO/APAP [Concomitant]
     Active Substance: ACETAMINOPHEN\HYDROCODONE
  27. DOK [Concomitant]
     Active Substance: DOCUSATE SODIUM
  28. QUETIAPINE. [Concomitant]
     Active Substance: QUETIAPINE
  29. ATORVASTATIN [Concomitant]
     Active Substance: ATORVASTATIN
  30. CYCLOBENZAPR [Concomitant]
     Active Substance: CYCLOBENZAPRINE
  31. DULOXETINE. [Concomitant]
     Active Substance: DULOXETINE

REACTIONS (1)
  - Rash [None]

NARRATIVE: CASE EVENT DATE: 20190917
